FAERS Safety Report 12893046 (Version 4)
Quarter: 2017Q1

REPORT INFORMATION
  Report Type: Report from Study
  Country: US (occurrence: US)
  Receive Date: 20161028
  Receipt Date: 20170130
  Transmission Date: 20170428
  Serious: Yes (Hospitalization, Other)
  Sender: FDA-Public Use
  Company Number: US-JNJFOC-20160929947

PATIENT
  Age: 84 Year
  Sex: Female

DRUGS (1)
  1. IMBRUVICA [Suspect]
     Active Substance: IBRUTINIB
     Indication: CHRONIC LYMPHOCYTIC LEUKAEMIA
     Route: 048
     Dates: start: 20150515, end: 2016

REACTIONS (10)
  - Blood iron decreased [Unknown]
  - Pelvic fracture [Not Recovered/Not Resolved]
  - Pyrexia [Unknown]
  - Haemoglobin abnormal [Unknown]
  - Loss of consciousness [Recovered/Resolved]
  - Pain [Not Recovered/Not Resolved]
  - Fatigue [Unknown]
  - Pain in extremity [Unknown]
  - Fall [Recovering/Resolving]
  - Bacterial sepsis [Unknown]

NARRATIVE: CASE EVENT DATE: 201610
